FAERS Safety Report 5032167-9 (Version None)
Quarter: 2006Q2

REPORT INFORMATION
  Report Type: 
  Country: None (occurrence: None)
  Receive Date: 20060616
  Receipt Date: 20060607
  Transmission Date: 20061013
  Serious: Yes (Death, Life-Threatening, Hospitalization, Disabling)
  Sender: FDA-Public Use
  Company Number: 2006MP000554

PATIENT
  Age: 68 Year
  Sex: Male

DRUGS (6)
  1. AGGRASTAT [Suspect]
     Indication: ANGINA UNSTABLE
     Dosage: 0.4 UG/KG/MIN; IV
     Route: 042
     Dates: start: 20051021, end: 20051021
  2. ASPIRIN [Concomitant]
  3. HEPARIN [Concomitant]
  4. HEPARIN LOW MOLECULAR WEIGHT [Concomitant]
  5. INSULIN [Concomitant]
  6. METFORMIN [Concomitant]

REACTIONS (1)
  - MULTI-ORGAN FAILURE [None]
